FAERS Safety Report 8531876-4 (Version None)
Quarter: 2012Q3

REPORT INFORMATION
  Report Type: 
  Country: None (occurrence: None)
  Receive Date: 20120723
  Receipt Date: 20120712
  Transmission Date: 20120928
  Serious: Yes (Other)
  Sender: FDA-Public Use
  Company Number: US-MYLANLABS-2012S1014228

PATIENT

DRUGS (1)
  1. LEVOTHYROXINE SODIUM [Suspect]
     Indication: THYROID DISORDER

REACTIONS (5)
  - PALPITATIONS [None]
  - ARTHRALGIA [None]
  - BLOOD PRESSURE INCREASED [None]
  - DIZZINESS [None]
  - CARDIAC FLUTTER [None]
